FAERS Safety Report 11306460 (Version 1)
Quarter: 2015Q3

REPORT INFORMATION
  Report Type: Spontaneous
  Country: DE (occurrence: DE)
  Receive Date: 20150723
  Receipt Date: 20150723
  Transmission Date: 20151125
  Serious: Yes (Hospitalization)
  Sender: FDA-Public Use
  Company Number: DE-TEVA-579988GER

PATIENT
  Sex: Female

DRUGS (3)
  1. HEXAL BETABLOCKER [Interacting]
     Active Substance: UNSPECIFIED INGREDIENT
     Dosage: INTAKE IN THE MORNING
     Route: 065
  2. RAMIPRIL RAMILICH 5 MG [Interacting]
     Active Substance: RAMIPRIL
     Dosage: INTAKE IN THE MORNING
     Route: 065
  3. LOPERAMIDE RATIOPHARM [Suspect]
     Active Substance: LOPERAMIDE HYDROCHLORIDE
     Indication: DIARRHOEA

REACTIONS (5)
  - Dizziness [Unknown]
  - Drug interaction [Unknown]
  - Somnolence [Unknown]
  - Syncope [Unknown]
  - Vomiting [Unknown]
